FAERS Safety Report 16308686 (Version 1)
Quarter: 2019Q2

REPORT INFORMATION
  Report Type: Spontaneous
  Country: US (occurrence: US)
  Receive Date: 20190514
  Receipt Date: 20190514
  Transmission Date: 20190711
  Serious: No
  Sender: FDA-Public Use
  Company Number: US-FRESENIUS KABI-FK201905415

PATIENT

DRUGS (1)
  1. DIPRIVAN [Suspect]
     Active Substance: PROPOFOL
     Indication: INDUCTION OF ANAESTHESIA
     Dosage: 20,900 MCG WAS GIVEN FROM THE 100ML BOTTLE. TOTAL DOSE NOT RECORDED FROM THE 50ML BOTTLE, BUT WAS SE
     Route: 040

REACTIONS (1)
  - Drug ineffective [Unknown]
